FAERS Safety Report 5274348-5 (Version None)
Quarter: 2007Q1

REPORT INFORMATION
  Report Type: 
  Country: None (occurrence: None)
  Receive Date: 20070323
  Receipt Date: 20070315
  Transmission Date: 20070707
  Serious: Yes (Death, Other)
  Sender: FDA-Public Use
  Company Number: US-PFIZER INC-2004106702

PATIENT
  Sex: Male
  Weight: 74.4 kg

DRUGS (21)
  1. NEURONTIN [Suspect]
     Indication: MUSCLE SPASMS
  2. NEURONTIN [Suspect]
     Indication: PAIN
  3. ACETAMINOPHEN [Suspect]
  4. HYDROCODONE [Suspect]
  5. ULTRAM [Suspect]
  6. MEPROBAMATE [Suspect]
  7. CARISOPRODOL [Suspect]
  8. ETHANOL [Concomitant]
  9. OXYCODONE HCL [Concomitant]
  10. PROMETHAZINE [Concomitant]
  11. SKELAXIN [Concomitant]
  12. CATAFLAM [Concomitant]
  13. DARVOCET [Concomitant]
  14. VIOXX [Concomitant]
  15. TETRACYCLINE [Concomitant]
  16. ZOVIRAX [Concomitant]
  17. BACLOFEN [Concomitant]
  18. ZANAFLEX [Concomitant]
  19. VIAGRA [Concomitant]
     Indication: ERECTILE DYSFUNCTION
  20. LORCET-HD [Concomitant]
  21. IBUPROFEN [Concomitant]

REACTIONS (11)
  - CELLULITIS [None]
  - COMPLETED SUICIDE [None]
  - DEPRESSION [None]
  - DRUG INEFFECTIVE [None]
  - DRUG TOXICITY [None]
  - ERECTILE DYSFUNCTION [None]
  - FAECAL INCONTINENCE [None]
  - MULTIPLE DRUG OVERDOSE INTENTIONAL [None]
  - PAIN IN EXTREMITY [None]
  - SLEEP DISORDER [None]
  - URINARY INCONTINENCE [None]
